FAERS Safety Report 7948184-2 (Version None)
Quarter: 2011Q4

REPORT INFORMATION
  Report Type: 
  Country: None (occurrence: None)
  Receive Date: 20111125
  Receipt Date: 20111111
  Transmission Date: 20120403
  Serious: Yes (Other)
  Sender: FDA-Public Use
  Company Number: TPA2011A07639

PATIENT
  Sex: Male

DRUGS (2)
  1. EDARBI [Suspect]
     Indication: HYPERTENSION
     Dosage: 80 MG, 1 IN 1 D, PER ORAL
     Route: 048
     Dates: start: 20110101, end: 20110101
  2. LASIX [Concomitant]

REACTIONS (3)
  - PALPITATIONS [None]
  - LOSS OF CONSCIOUSNESS [None]
  - DIZZINESS [None]
